FAERS Safety Report 8340058-0 (Version None)
Quarter: 2012Q2

REPORT INFORMATION
  Report Type: 
  Country: None (occurrence: None)
  Receive Date: 20120507
  Receipt Date: 20090410
  Transmission Date: 20120825
  Serious: Yes (Hospitalization)
  Sender: FDA-Public Use
  Company Number: US-TEVA-2009002693

PATIENT
  Sex: Male
  Weight: 84.898 kg

DRUGS (5)
  1. TREANDA [Suspect]
     Indication: CHRONIC LYMPHOCYTIC LEUKAEMIA
     Route: 042
  2. TREANDA [Suspect]
     Route: 042
  3. TREANDA [Suspect]
     Route: 042
     Dates: start: 20080820, end: 20090219
  4. CAMPATH [Suspect]
     Indication: CHRONIC LYMPHOCYTIC LEUKAEMIA
     Dosage: 4.2857 MILLIGRAM;
     Route: 058
     Dates: start: 20071001, end: 20090201
  5. ERBITUX [Concomitant]
     Indication: SQUAMOUS CELL CARCINOMA
     Dosage: 35.7143 MG/M2;
     Route: 042
     Dates: start: 20080601, end: 20090301

REACTIONS (1)
  - TUMOUR LYSIS SYNDROME [None]
